FAERS Safety Report 21833524 (Version 2)
Quarter: 2023Q1

REPORT INFORMATION
  Report Type: Report from Study
  Country: CA (occurrence: CA)
  Receive Date: 20230107
  Receipt Date: 20230123
  Transmission Date: 20230417
  Serious: Yes (Other)
  Sender: FDA-Public Use
  Company Number: CA-CELLTRION INC.-2022CA022110

PATIENT

DRUGS (5)
  1. TRUXIMA [Suspect]
     Active Substance: RITUXIMAB-ABBS
     Indication: Non-Hodgkin^s lymphoma
     Dosage: 1000 MILLIGRAM, EVERY 2 WEEK (DAY 1) (FOR 5 TO 7 CYCLES UNLESS DISEASE PROGRESSION OR UNACCEPTABLE T
     Route: 042
  2. TRUXIMA [Suspect]
     Active Substance: RITUXIMAB-ABBS
     Indication: Post transplant lymphoproliferative disorder
  3. METHOTREXATE [Suspect]
     Active Substance: METHOTREXATE
     Indication: Non-Hodgkin^s lymphoma
     Dosage: 3500 MILLIGRAM, IV OVER 2 HOURS (DAY 2) (FOR 5 TO 7 CYCLES UNLESS DISEASE PROGRESSION OR UNACCEPTABL
     Route: 042
  4. VINCRISTINE [Suspect]
     Active Substance: VINCRISTINE
     Indication: Non-Hodgkin^s lymphoma
     Dosage: 1.4 MG/M2 (DAY 2) (FOR 5 TO 7 CYCLES UNLESS DISEASE PROGRESSION OR UNACCEPTABLE TOXICITY OCCURS)
     Route: 042
  5. PROCARBAZINE [Suspect]
     Active Substance: PROCARBAZINE
     Indication: Non-Hodgkin^s lymphoma
     Dosage: 100 MG/M2 (DAY 1 TO 7, ON ODD CYCLES) (FOR 5 TO 7 CYCLES UNLESS DISEASE PROGRESSION OR UNACCEPTABLE
     Route: 048

REACTIONS (2)
  - Post transplant lymphoproliferative disorder [Unknown]
  - Off label use [Unknown]
